FAERS Safety Report 5852703-X (Version None)
Quarter: 2008Q3

REPORT INFORMATION
  Report Type: 
  Country: None (occurrence: None)
  Receive Date: 20080819
  Receipt Date: 20080811
  Transmission Date: 20090109
  Serious: Yes (Life-Threatening)
  Sender: FDA-Public Use
  Company Number: TUK2008A00077

PATIENT
  Age: 74 Year
  Sex: Female

DRUGS (2)
  1. ACTOS [Suspect]
     Indication: DIABETES MELLITUS
     Dosage: 15 MG ORAL/DAYS
     Route: 048
     Dates: end: 20080720
  2. GLICLAZIDE (GLICLAZIDE) [Concomitant]

REACTIONS (2)
  - ANAEMIA [None]
  - PULMONARY OEDEMA [None]
